FAERS Safety Report 21809386 (Version 1)
Quarter: 2023Q1

REPORT INFORMATION
  Report Type: Report from Study
  Country: US (occurrence: US)
  Receive Date: 20230103
  Receipt Date: 20230103
  Transmission Date: 20230417
  Serious: No
  Sender: FDA-Public Use
  Company Number: US-ABBVIE-4196409

PATIENT
  Sex: Female

DRUGS (5)
  1. SKYRIZI [Suspect]
     Active Substance: RISANKIZUMAB-RZAA
     Indication: Psoriatic arthropathy
     Dosage: FORM STRENGTH 150 MG
     Route: 058
     Dates: start: 20220831
  2. PREDNISONE [Concomitant]
     Active Substance: PREDNISONE
     Indication: Product used for unknown indication
     Dosage: FORM STRENGTH 20 MG
     Route: 048
  3. 2500 ?g Vitamin b12 [Concomitant]
     Indication: Product used for unknown indication
  4. VITAMIN D3 [Concomitant]
     Active Substance: CHOLECALCIFEROL
     Indication: Product used for unknown indication
     Dosage: POWDER
  5. 25 mg/ml Methotrexate (Methotrexate sodium) [Concomitant]
     Indication: Product used for unknown indication
     Dosage: 25 MG/ML

REACTIONS (2)
  - Infection [Unknown]
  - Headache [Unknown]
